FAERS Safety Report 5358989-2 (Version None)
Quarter: 2007Q2

REPORT INFORMATION
  Report Type: 
  Country: None (occurrence: None)
  Receive Date: 20070615
  Receipt Date: 20070604
  Transmission Date: 20071010
  Serious: Yes (Hospitalization, Other)
  Sender: FDA-Public Use
  Company Number: US-ROCHE-473383

PATIENT
  Sex: Male
  Weight: 72.6 kg

DRUGS (1)
  1. ACCUTANE [Suspect]
     Route: 065
     Dates: start: 19970224, end: 19970801

REACTIONS (14)
  - ABDOMINAL PAIN [None]
  - ANAL FISTULA [None]
  - COLITIS [None]
  - CROHN'S DISEASE [None]
  - ENTEROCOLITIS [None]
  - ILEITIS [None]
  - INFLAMMATORY BOWEL DISEASE [None]
  - INTESTINAL HAEMORRHAGE [None]
  - INTESTINAL OBSTRUCTION [None]
  - INTESTINAL STENOSIS [None]
  - PERIRECTAL ABSCESS [None]
  - PSEUDOPOLYP [None]
  - RECTAL HAEMORRHAGE [None]
  - WEIGHT DECREASED [None]
